FAERS Safety Report 5145173-0 (Version None)
Quarter: 2006Q4

REPORT INFORMATION
  Report Type: 
  Country: None (occurrence: None)
  Receive Date: 20061107
  Receipt Date: 20061004
  Transmission Date: 20070319
  Serious: Yes (Hospitalization)
  Sender: FDA-Public Use
  Company Number: US-ELI_LILLY_AND_COMPANY-US200610000959

PATIENT
  Age: 76 Year
  Sex: Female

DRUGS (5)
  1. FORTEO [Suspect]
     Indication: OSTEOPOROSIS
     Dosage: UNK, UNK
     Dates: start: 20060622
  2. PLAVIX                                  /UNK/ [Concomitant]
     Indication: TRANSIENT ISCHAEMIC ATTACK
     Dosage: 72 MG, DAILY (1/D)
  3. HYDROCODONE W/ACETYLSALICYLIC ACID [Concomitant]
     Dosage: UNK, AS NEEDED
  4. NORVASC [Concomitant]
     Indication: HYPERTENSION
     Dosage: 2 MG, DAILY (1/D)
  5. CALTRATE [Concomitant]

REACTIONS (4)
  - BENIGN BONE NEOPLASM [None]
  - KYPHOSIS [None]
  - SPINAL COMPRESSION FRACTURE [None]
  - WEIGHT DECREASED [None]
